FAERS Safety Report 9994644 (Version 1)
Quarter: 2014Q1

REPORT INFORMATION
  Report Type: Report from Study
  Country: US (occurrence: US)
  Receive Date: 20140311
  Receipt Date: 20140311
  Transmission Date: 20141002
  Serious: Yes (Other)
  Sender: FDA-Public Use
  Company Number: US-ROCHE-1358460

PATIENT
  Sex: Male

DRUGS (6)
  1. LUCENTIS [Suspect]
     Indication: AGE-RELATED MACULAR DEGENERATION
     Dosage: OS
     Route: 050
     Dates: start: 20140109
  2. AVASTIN [Suspect]
     Indication: AGE-RELATED MACULAR DEGENERATION
     Route: 050
  3. EYLEA [Concomitant]
     Dosage: OS
     Route: 065
  4. WARFARIN [Concomitant]
  5. LOSARTAN [Concomitant]
  6. CARVEDILOL [Concomitant]
     Route: 065

REACTIONS (2)
  - Retinal oedema [Unknown]
  - Oscillopsia [Unknown]
